FAERS Safety Report 7449071-9 (Version None)
Quarter: 2011Q2

REPORT INFORMATION
  Report Type: 
  Country: None (occurrence: None)
  Receive Date: 20110502
  Receipt Date: 20071022
  Transmission Date: 20111010
  Serious: Yes (Death, Hospitalization, Other)
  Sender: FDA-Public Use
  Company Number: US-BAYER-200819602NA

PATIENT
  Age: 61 Year
  Sex: Male
  Weight: 126.98 kg

DRUGS (40)
  1. TRASYLOL [Suspect]
     Indication: CORONARY ARTERY BYPASS
     Dosage: 1 ML, TEST DOSE
     Route: 042
     Dates: start: 20041220, end: 20041220
  2. OXYCODONE [Concomitant]
  3. CYCLOBENZAPRINE [Concomitant]
  4. LISINOPRIL [Concomitant]
  5. MUCOMYST [Concomitant]
  6. ALTACE [Concomitant]
  7. TRASYLOL [Suspect]
     Dosage: 200 MG, BYPASS PUMP
     Dates: start: 20041220, end: 20041220
  8. TRASYLOL [Suspect]
     Dosage: 100 ML, PUMP PRIME
     Dates: start: 20041220
  9. PRAVACHOL [Concomitant]
  10. LOVENOX [Concomitant]
  11. HEPARIN [Concomitant]
     Dosage: 5000 UNITS
     Route: 042
     Dates: start: 20041220
  12. LASIX [Concomitant]
     Dosage: 40 MG, UNK
     Route: 042
     Dates: start: 20041220
  13. AMIDATE [Concomitant]
     Dosage: 30 MG, UNK
     Route: 042
     Dates: start: 20041220
  14. PANCURONIUM BROMIDE [Concomitant]
     Dosage: 10 MG, UNK
     Route: 042
     Dates: start: 20041220
  15. LOPRESSOR [Concomitant]
  16. NEURONTIN [Concomitant]
  17. LASIX [Concomitant]
  18. ISOFLURANE [Concomitant]
     Dosage: UNK
     Dates: start: 20041220
  19. LIDOCAINE [Concomitant]
     Dosage: 100 MG, UNK
     Dates: start: 20041220
  20. PERCOCET [Concomitant]
  21. AVANDIA [Concomitant]
  22. VASOTEC [Concomitant]
  23. ALBUMIN HUMAN SALT-POOR [Concomitant]
     Dosage: 250 ML, UNK
     Route: 042
     Dates: start: 20041220
  24. MIDAZOLAM [Concomitant]
     Dosage: UNK
     Route: 042
     Dates: start: 20041220
  25. TYLENOL REGULAR [Concomitant]
  26. GLUCOTROL [Concomitant]
  27. RED BLOOD CELLS, LEUCOCYTE DEPLETED [Concomitant]
     Dosage: 3 U, UNK
     Route: 042
     Dates: start: 20041220
  28. TRASYLOL [Suspect]
     Dosage: 250,000 KIU/HR
     Dates: start: 20041220, end: 20041220
  29. HEPARIN [Concomitant]
     Dosage: 10,000 UNITS
     Route: 042
     Dates: start: 20041220
  30. PROTAMINE SULFATE [Concomitant]
     Dosage: 500 MG
     Route: 042
     Dates: start: 20041220
  31. ANCEF [Concomitant]
     Dosage: 1 G, UNK
     Route: 042
     Dates: start: 20041220
  32. SUCCINYLCHOLINE CHLORIDE [Concomitant]
     Dosage: 100 MG, UNK
     Route: 042
     Dates: start: 20041220
  33. TRASYLOL [Suspect]
     Dosage: 100,000 KIU IV BOLUS OVER 20 MINUTES
     Route: 042
     Dates: start: 20041220
  34. ACETYLSALICYLIC ACID SRT [Concomitant]
  35. FENTANYL [Concomitant]
     Dosage: 2 ML, UNK
     Route: 042
     Dates: start: 20041220
  36. NITROGLYCERIN [Concomitant]
     Dosage: UNK
     Route: 042
     Dates: start: 20041220
  37. HYDRALAZINE HCL [Concomitant]
  38. OXYCONTIN [Concomitant]
  39. HEPARIN [Concomitant]
     Dosage: BYPASS PUMP
  40. PROPOFOL [Concomitant]
     Dosage: UNK
     Route: 042
     Dates: start: 20041220

REACTIONS (11)
  - MULTI-ORGAN FAILURE [None]
  - INJURY [None]
  - ACTIVITIES OF DAILY LIVING IMPAIRED [None]
  - EMOTIONAL DISTRESS [None]
  - ANHEDONIA [None]
  - UNEVALUABLE EVENT [None]
  - ILL-DEFINED DISORDER [None]
  - FEAR OF DEATH [None]
  - ADVERSE EVENT [None]
  - RENAL FAILURE ACUTE [None]
  - PAIN [None]
